FAERS Safety Report 19202242 (Version 1)
Quarter: 2021Q2

REPORT INFORMATION
  Report Type: Spontaneous
  Country: FR (occurrence: FR)
  Receive Date: 20210502
  Receipt Date: 20210502
  Transmission Date: 20210717
  Serious: Yes (Life-Threatening)
  Sender: FDA-Public Use
  Company Number: NVSC2021FR098281

PATIENT
  Age: 76 Year
  Sex: Male

DRUGS (3)
  1. BRILIQUE [Suspect]
     Active Substance: TICAGRELOR
     Indication: INFARCTION
     Dosage: 180 MG, QD (NON ADMINISTRE)
     Route: 048
     Dates: start: 20201107, end: 20201117
  2. KARDEGIC [Suspect]
     Active Substance: ASPIRIN DL-LYSINE
     Indication: INFARCTION
     Dosage: 75 MG, QD (NON ADMINISTRE)
     Route: 048
     Dates: start: 20201108, end: 20201117
  3. BISOPROLOL [Suspect]
     Active Substance: BISOPROLOL
     Indication: INFARCTION
     Dosage: UNK (NON ADMINISTRE)
     Route: 048
     Dates: start: 202011, end: 20201117

REACTIONS (3)
  - Acute myocardial infarction [Recovered/Resolved]
  - Vascular stent thrombosis [Recovered/Resolved]
  - Product dose omission issue [Recovered/Resolved]

NARRATIVE: CASE EVENT DATE: 20201117
